FAERS Safety Report 7512471-2 (Version None)
Quarter: 2011Q2

REPORT INFORMATION
  Report Type: 
  Country: None (occurrence: None)
  Receive Date: 20110531
  Receipt Date: 20110531
  Transmission Date: 20111010
  Serious: Yes (Life-Threatening, Other)
  Sender: FDA-Public Use
  Company Number: AU-ROCHE-773736

PATIENT
  Age: 69 Year
  Sex: Male
  Weight: 81 kg

DRUGS (2)
  1. XELODA [Suspect]
     Route: 048
     Dates: start: 20110414, end: 20110425
  2. XELODA [Suspect]
     Route: 048
     Dates: start: 20110319, end: 20110430

REACTIONS (3)
  - TOXIC EPIDERMAL NECROLYSIS [None]
  - ACUTE PULMONARY OEDEMA [None]
  - ATRIAL FIBRILLATION [None]
